FAERS Safety Report 7400222-1 (Version None)
Quarter: 2011Q2

REPORT INFORMATION
  Report Type: 
  Country: None (occurrence: None)
  Receive Date: 20110407
  Receipt Date: 20110329
  Transmission Date: 20111010
  Serious: Yes (Hospitalization)
  Sender: FDA-Public Use
  Company Number: US-ACTELION-A-NJ2011-43628

PATIENT

DRUGS (3)
  1. CALCIUM CHANNEL BLOCKERS [Concomitant]
  2. TRACLEER [Suspect]
     Indication: PULMONARY ARTERIAL HYPERTENSION
     Dosage: 62.5 UNK, UNK
     Route: 048
     Dates: start: 20070918
  3. VENTAVIS [Suspect]
     Indication: PULMONARY ARTERIAL HYPERTENSION
     Dosage: UNK MG, BID
     Route: 055
     Dates: start: 20101026

REACTIONS (4)
  - COUGH [None]
  - BRONCHITIS [None]
  - HOT FLUSH [None]
  - FLUSHING [None]
